FAERS Safety Report 12480316 (Version 1)
Quarter: 2016Q2

REPORT INFORMATION
  Report Type: Report from Study
  Country: US (occurrence: US)
  Receive Date: 20160620
  Receipt Date: 20160620
  Transmission Date: 20160815
  Serious: No
  Sender: FDA-Public Use
  Company Number: US-AMGEN-USASL2016078124

PATIENT
  Age: 77 Year
  Sex: Female

DRUGS (1)
  1. ENBREL [Suspect]
     Active Substance: ETANERCEPT
     Indication: RHEUMATOID ARTHRITIS
     Dosage: UNK
     Route: 065
     Dates: end: 201509

REACTIONS (4)
  - Pain in extremity [Not Recovered/Not Resolved]
  - Knee operation [Unknown]
  - Musculoskeletal disorder [Not Recovered/Not Resolved]
  - Impaired healing [Unknown]
